FAERS Safety Report 18394422 (Version 2)
Quarter: 2020Q4

REPORT INFORMATION
  Report Type: Spontaneous
  Country: SI (occurrence: SI)
  Receive Date: 20201017
  Receipt Date: 20201207
  Transmission Date: 20210114
  Serious: Yes (Death, Other)
  Sender: FDA-Public Use
  Company Number: NVSC2020SI269076

PATIENT
  Age: 37 Year
  Sex: Male

DRUGS (8)
  1. CERITINIB [Suspect]
     Active Substance: CERITINIB
     Indication: NON-SMALL CELL LUNG CANCER
     Dosage: 450 MG,QD (SECOND LINE)
     Route: 065
     Dates: start: 201904
  2. LORLATINIB [Suspect]
     Active Substance: LORLATINIB
     Indication: NON-SMALL CELL LUNG CANCER
     Dosage: 100 MG,QD (THIRD LINE)
     Route: 065
     Dates: start: 201907
  3. BRIGATINIB [Suspect]
     Active Substance: BRIGATINIB
     Dosage: 180 MG, QD (FOURTH LINE)
     Route: 065
  4. VALPROIC ACID. [Concomitant]
     Active Substance: VALPROIC ACID
     Indication: EPILEPSY
     Dosage: UNK
     Route: 065
  5. ALECENSA [Suspect]
     Active Substance: ALECTINIB HYDROCHLORIDE
     Indication: NON-SMALL CELL LUNG CANCER
     Dosage: 600 MG, Q12H
     Route: 048
     Dates: start: 201802
  6. DEPAKINE CHRONO [Concomitant]
     Active Substance: VALPROATE SODIUM
     Indication: EPILEPSY
     Dosage: 500 MG
     Route: 065
  7. BRIGATINIB [Suspect]
     Active Substance: BRIGATINIB
     Indication: NON-SMALL CELL LUNG CANCER
     Dosage: 90 MG, QD (FOURTH LINE)
     Route: 065
     Dates: start: 201909
  8. ALECENSA [Suspect]
     Active Substance: ALECTINIB HYDROCHLORIDE
     Dosage: 600 MG (PER 0.5 DAY)
     Route: 048
     Dates: start: 20180214, end: 20190418

REACTIONS (21)
  - Fatigue [Unknown]
  - Abdominal pain [Unknown]
  - Hydronephrosis [Unknown]
  - Flatulence [Unknown]
  - Normocytic anaemia [Unknown]
  - Central nervous system lesion [Unknown]
  - Cough [Unknown]
  - Weight decreased [Unknown]
  - Diarrhoea [Unknown]
  - Disease progression [Unknown]
  - Hyperbilirubinaemia [Recovered/Resolved]
  - Abdominal pain [Unknown]
  - Death [Fatal]
  - Ascites [Unknown]
  - Decreased appetite [Unknown]
  - Metastases to lung [Unknown]
  - Malignant nervous system neoplasm [Unknown]
  - Nervous system disorder [Unknown]
  - Hypercholesterolaemia [Unknown]
  - Pain [Unknown]
  - Metastases to liver [Unknown]

NARRATIVE: CASE EVENT DATE: 201802
